FAERS Safety Report 5772746-4 (Version None)
Quarter: 2008Q2

REPORT INFORMATION
  Report Type: 
  Country: None (occurrence: None)
  Receive Date: 20080613
  Receipt Date: 20080605
  Transmission Date: 20081010
  Serious: Yes (Other)
  Sender: FDA-Public Use
  Company Number: JP-PFIZER INC-2008046212

PATIENT
  Age: 60 Year
  Sex: Female

DRUGS (4)
  1. MEDROL [Suspect]
     Route: 048
     Dates: start: 20080527, end: 20080529
  2. ASTHPHYLLIN [Concomitant]
  3. MUCODYNE [Concomitant]
  4. FAMOTIDINE [Concomitant]

REACTIONS (1)
  - MONOPLEGIA [None]
